FAERS Safety Report 25671718 (Version 2)
Quarter: 2025Q3

REPORT INFORMATION
  Report Type: Spontaneous
  Country: IN (occurrence: IN)
  Receive Date: 20250812
  Receipt Date: 20250813
  Transmission Date: 20251021
  Serious: Yes (Death, Life-Threatening, Hospitalization)
  Sender: PFIZER
  Company Number: IN-MLMSERVICE-20250805-PI596717-00232-2

PATIENT
  Age: 40 Year
  Sex: Male

DRUGS (9)
  1. PREDNISOLONE [Suspect]
     Active Substance: PREDNISOLONE
     Indication: Immunosuppressant drug therapy
  2. METHYLPREDNISOLONE [Suspect]
     Active Substance: METHYLPREDNISOLONE
     Indication: Blood creatinine abnormal
  3. METHYLPREDNISOLONE [Suspect]
     Active Substance: METHYLPREDNISOLONE
  4. MYCOPHENOLIC ACID [Suspect]
     Active Substance: MYCOPHENOLIC ACID
     Indication: Immunosuppressant drug therapy
  5. TACROLIMUS [Suspect]
     Active Substance: TACROLIMUS
     Indication: Immunosuppressant drug therapy
     Dosage: 1.5 MG, 2X/DAY
  6. TACROLIMUS [Suspect]
     Active Substance: TACROLIMUS
     Dosage: 1.25 MG, 2X/DAY
  7. MYCOPHENOLATE SODIUM [Suspect]
     Active Substance: MYCOPHENOLATE SODIUM
     Indication: Immunosuppressant drug therapy
  8. MYCOPHENOLATE MOFETIL [Suspect]
     Active Substance: MYCOPHENOLATE MOFETIL
     Indication: Immunosuppressant drug therapy
  9. VALGANCICLOVIR [Suspect]
     Active Substance: VALGANCICLOVIR

REACTIONS (16)
  - Pseudomonas infection [Fatal]
  - Interstitial lung disease [Fatal]
  - Urinary tract infection [Fatal]
  - Pyelonephritis [Fatal]
  - Metabolic acidosis [Fatal]
  - Septic shock [Fatal]
  - Renal cyst infection [Fatal]
  - Renal tubular necrosis [Fatal]
  - Pancytopenia [Fatal]
  - Cardiac failure chronic [Fatal]
  - Hydronephrosis [Fatal]
  - Transplant rejection [Fatal]
  - Enterococcal infection [Unknown]
  - Cytopenia [Unknown]
  - Leukopenia [Unknown]
  - Cough [Unknown]
